FAERS Safety Report 16190411 (Version 1)
Quarter: 2019Q2

REPORT INFORMATION
  Report Type: Spontaneous
  Country: US (occurrence: US)
  Receive Date: 20190412
  Receipt Date: 20190412
  Transmission Date: 20190711
  Serious: Yes (Hospitalization)
  Sender: FDA-Public Use
  Company Number: US-FRESENIUS KABI-FK201904084

PATIENT
  Sex: Female

DRUGS (2)
  1. FOLIC ACID. [Concomitant]
     Active Substance: FOLIC ACID
     Indication: PRODUCT USED FOR UNKNOWN INDICATION
     Route: 065
  2. METHOTREXATE (MANUFACTURER UNKNOWN) [Suspect]
     Active Substance: METHOTREXATE
     Indication: PRODUCT USED FOR UNKNOWN INDICATION
     Route: 065

REACTIONS (9)
  - Atrioventricular septal defect [Unknown]
  - Exophthalmos [Unknown]
  - Patent ductus arteriosus [Unknown]
  - Congenital facial nerve hypoplasia [Unknown]
  - Syndactyly [Unknown]
  - Limb hypoplasia congenital [Unknown]
  - Anterior displaced anus [Unknown]
  - Foetal exposure during pregnancy [Unknown]
  - Cleft palate [Unknown]
